FAERS Safety Report 21572171 (Version 2)
Quarter: 2022Q4

REPORT INFORMATION
  Report Type: Report from Study
  Country: US (occurrence: US)
  Receive Date: 20221109
  Receipt Date: 20221124
  Transmission Date: 20230113
  Serious: Yes (Other)
  Sender: FDA-Public Use
  Company Number: US-TAKEDA-2022TUS052093

PATIENT
  Sex: Male
  Weight: 72.56 kg

DRUGS (13)
  1. HUMAN IMMUNOGLOBULIN G [Suspect]
     Active Substance: HUMAN IMMUNOGLOBULIN G
     Indication: Asthma
     Dosage: 400 MILLIGRAM/KILOGRAM, 1/WEEK
     Route: 042
     Dates: start: 20210202
  2. HUMAN IMMUNOGLOBULIN G [Suspect]
     Active Substance: HUMAN IMMUNOGLOBULIN G
     Indication: Chronic inflammatory demyelinating polyradiculoneuropathy
     Dosage: 30 GRAM, QD
     Route: 042
     Dates: start: 20210202
  3. EPINEPHRINE [Concomitant]
     Active Substance: EPINEPHRINE
     Route: 065
  4. SODIUM CHLORIDE [Concomitant]
     Active Substance: SODIUM CHLORIDE
     Route: 065
  5. METFORMIN [Concomitant]
     Active Substance: METFORMIN HYDROCHLORIDE
     Route: 065
  6. IBUPROFEN [Concomitant]
     Active Substance: IBUPROFEN
  7. GABAPENTIN [Concomitant]
     Active Substance: GABAPENTIN
     Route: 065
  8. LORATADINE [Concomitant]
     Active Substance: LORATADINE
     Route: 065
  9. SYNTHROID [Concomitant]
     Active Substance: LEVOTHYROXINE SODIUM
     Indication: Asthma
  10. MONTELUKAST SODIUM [Concomitant]
     Active Substance: MONTELUKAST SODIUM
     Route: 065
  11. Lmx [Concomitant]
     Route: 065
  12. FASENRA [Concomitant]
     Active Substance: BENRALIZUMAB
     Route: 065
  13. HEPARIN [Concomitant]
     Active Substance: HEPARIN SODIUM

REACTIONS (6)
  - Chronic inflammatory demyelinating polyradiculoneuropathy [Unknown]
  - COVID-19 [Unknown]
  - Off label use [Unknown]
  - Infection [Unknown]
  - Condition aggravated [Unknown]
  - Drug level below therapeutic [Unknown]
